FAERS Safety Report 5058359-0 (Version None)
Quarter: 2006Q2

REPORT INFORMATION
  Report Type: 
  Country: None (occurrence: None)
  Receive Date: 20060627
  Receipt Date: 20050805
  Transmission Date: 20061013
  Serious: Yes (Hospitalization)
  Sender: FDA-Public Use
  Company Number: 413408

PATIENT
  Age: 82 Year
  Sex: Male
  Weight: 59 kg

DRUGS (3)
  1. XELODA [Suspect]
     Indication: COLON CANCER
     Dosage: 1500 MG 2 PER DAY ORAL
     Route: 048
     Dates: start: 20050603, end: 20050624
  2. AVASTIN [Suspect]
     Indication: COLON CANCER
     Dosage: 5 MG/KG 1 PER 2 WEEK INTRAVENOUS
     Route: 042
     Dates: start: 20050625, end: 20050708
  3. OXALIPLATIN (OXALIPLATIN) [Concomitant]

REACTIONS (3)
  - BLOOD BILIRUBIN INCREASED [None]
  - HEPATIC ENZYME INCREASED [None]
  - JAUNDICE [None]
